FAERS Safety Report 6751310-4 (Version None)
Quarter: 2010Q2

REPORT INFORMATION
  Report Type: 
  Country: None (occurrence: None)
  Receive Date: 20100602
  Receipt Date: 20100526
  Transmission Date: 20101027
  Serious: Yes (Other)
  Sender: FDA-Public Use
  Company Number: BR-ASTRAZENECA-2010SE22189

PATIENT
  Age: 19238 Day
  Sex: Female
  Weight: 56.7 kg

DRUGS (3)
  1. CRESTOR [Suspect]
     Indication: HYPERCHOLESTEROLAEMIA
     Route: 048
     Dates: start: 20100414
  2. APO-TRIAZIDE [Concomitant]
     Indication: DIURETIC THERAPY
     Route: 048
     Dates: start: 20000101
  3. VITAMIN D [Concomitant]

REACTIONS (1)
  - TREMOR [None]
